FAERS Safety Report 6666262-5 (Version None)
Quarter: 2010Q2

REPORT INFORMATION
  Report Type: 
  Country: None (occurrence: None)
  Receive Date: 20100402
  Receipt Date: 20100330
  Transmission Date: 20101027
  Serious: Yes (Hospitalization)
  Sender: FDA-Public Use
  Company Number: DE-JNJFOC-20100206682

PATIENT
  Age: 28 Year
  Sex: Male

DRUGS (6)
  1. PARACETAMOL [Suspect]
     Route: 048
  2. PARACETAMOL [Suspect]
     Indication: INFLUENZA
     Route: 048
  3. REACTINE [Suspect]
     Indication: ALLERGY TO ANIMAL
     Route: 048
  4. GRIPPOCAPS [Suspect]
     Indication: INFLUENZA
  5. IBUPROFEN [Suspect]
     Indication: INFLUENZA
  6. SYMBICORT [Concomitant]
     Route: 045

REACTIONS (1)
  - HEPATITIS ACUTE [None]
